FAERS Safety Report 9231865 (Version 2)
Quarter: 2013Q2

REPORT INFORMATION
  Report Type: Spontaneous
  Country: US (occurrence: US)
  Receive Date: 20130415
  Receipt Date: 20130429
  Transmission Date: 20140414
  Serious: Yes (Other)
  Sender: FDA-Public Use
  Company Number: US-WATSON-2013-06155

PATIENT
  Age: 64 Year
  Sex: Female

DRUGS (2)
  1. HYDROXYCHLOROQUINE SULFATE (WATSON LABORATORIES) [Suspect]
     Indication: SYSTEMIC LUPUS ERYTHEMATOSUS
     Dosage: UNKNOWN
     Route: 065
  2. PREDNISONE                         /00044702/ [Concomitant]
     Indication: SYSTEMIC LUPUS ERYTHEMATOSUS
     Dosage: UNKNOWN
     Route: 065

REACTIONS (2)
  - Restrictive cardiomyopathy [Recovering/Resolving]
  - Cardiac failure congestive [Recovering/Resolving]
